FAERS Safety Report 8727291 (Version 3)
Quarter: 2012Q4

REPORT INFORMATION
  Report Type: Report from Study
  Country: US (occurrence: US)
  Receive Date: 20120816
  Receipt Date: 20121026
  Transmission Date: 20130627
  Serious: Yes (Hospitalization)
  Sender: FDA-Public Use
  Company Number: US-ROCHE-1102115

PATIENT
  Age: 60 Year
  Sex: Female
  Weight: 61.29 kg

DRUGS (3)
  1. CAPECITABINE [Suspect]
     Indication: COLON CANCER
     Route: 048
     Dates: start: 20120730
  2. AVASTIN [Concomitant]
     Indication: COLON CANCER
     Route: 042
     Dates: start: 20120730, end: 20120925
  3. IRINOTECAN [Concomitant]
     Indication: COLON CANCER
     Route: 042
     Dates: start: 20120730

REACTIONS (4)
  - Pyrexia [Recovered/Resolved]
  - Chills [Not Recovered/Not Resolved]
  - Dehydration [Recovered/Resolved]
  - Diarrhoea [Unknown]
